FAERS Safety Report 23761857 (Version 1)
Quarter: 2024Q2

REPORT INFORMATION
  Report Type: Spontaneous
  Country: DE (occurrence: DE)
  Receive Date: 20240419
  Receipt Date: 20240419
  Transmission Date: 20240716
  Serious: Yes (Other)
  Sender: FDA-Public Use
  Company Number: DE-AKCEA THERAPEUTICS, INC.-2024IS003431

PATIENT

DRUGS (4)
  1. TEGSEDI [Suspect]
     Active Substance: INOTERSEN SODIUM
     Indication: Hereditary neuropathic amyloidosis
     Dosage: 285 MILLIGRAM, QW
     Route: 065
  2. TEGSEDI [Suspect]
     Active Substance: INOTERSEN SODIUM
     Dosage: 284 MILLIGRAM, QW
     Route: 065
  3. TEGSEDI [Suspect]
     Active Substance: INOTERSEN SODIUM
     Dosage: 285 MILLIGRAM, QW
     Route: 065
     Dates: start: 20181207
  4. RETINOL [Concomitant]
     Active Substance: RETINOL
     Indication: Supplementation therapy
     Dosage: 1000 MILLIGRAM, QD
     Route: 065
     Dates: start: 202102

REACTIONS (5)
  - Night blindness [Recovering/Resolving]
  - Asthenia [Unknown]
  - Alopecia [Unknown]
  - Fatigue [Unknown]
  - Vitamin A decreased [Recovering/Resolving]

NARRATIVE: CASE EVENT DATE: 20201203
